FAERS Safety Report 4564557-2 (Version None)
Quarter: 2005Q1

REPORT INFORMATION
  Report Type: 
  Country: None (occurrence: None)
  Receive Date: 20050126
  Receipt Date: 20050111
  Transmission Date: 20050727
  Serious: Yes (Life-Threatening, Hospitalization)
  Sender: FDA-Public Use
  Company Number: WAES 0412USA02986

PATIENT
  Age: 84 Year
  Sex: Male

DRUGS (4)
  1. FOSAMAX [Suspect]
     Indication: OSTEOPOROSIS
     Dosage: 5 MG/DAILY
     Route: 048
     Dates: start: 20031208, end: 20040217
  2. FERROMIA [Concomitant]
  3. MOBIC [Concomitant]
  4. PREDONINE [Concomitant]

REACTIONS (1)
  - MYOCARDIAL INFARCTION [None]
